FAERS Safety Report 4691092-3 (Version None)
Quarter: 2005Q2

REPORT INFORMATION
  Report Type: 
  Country: None (occurrence: None)
  Receive Date: 20050610
  Receipt Date: 20050526
  Transmission Date: 20051028
  Serious: Yes (Hospitalization)
  Sender: FDA-Public Use
  Company Number: CIP05001254

PATIENT
  Age: 54 Year
  Sex: Female

DRUGS (1)
  1. ACTONEL [Suspect]
     Indication: OSTEOPOROSIS
     Dosage: 25 MG ONE DOSE, ORAL
     Route: 048

REACTIONS (15)
  - ANAEMIA [None]
  - ASPARTATE AMINOTRANSFERASE INCREASED [None]
  - ASTHENIA [None]
  - BACK PAIN [None]
  - CHROMATURIA [None]
  - HAEMOGLOBINURIA [None]
  - HAEMOLYSIS [None]
  - INTRAVASCULAR HAEMOLYSIS [None]
  - NEUTROPHILIA [None]
  - PROTEINURIA [None]
  - PYREXIA [None]
  - RENAL TUBULAR NECROSIS [None]
  - TACHYCARDIA [None]
  - THROMBOCYTOPENIA [None]
  - WHITE BLOOD CELL COUNT INCREASED [None]
